FAERS Safety Report 11186162 (Version 1)
Quarter: 2015Q2

REPORT INFORMATION
  Report Type: Spontaneous
  Country: US (occurrence: US)
  Receive Date: 20150612
  Receipt Date: 20150612
  Transmission Date: 20150821
  Serious: Yes (Other)
  Sender: FDA-Public Use
  Company Number: US-ABBVIE-15P-163-1404527-00

PATIENT
  Age: 71 Year
  Sex: Male
  Weight: 106.69 kg

DRUGS (2)
  1. ANDROGEL [Suspect]
     Active Substance: TESTOSTERONE
     Indication: PRODUCT USED FOR UNKNOWN INDICATION
     Dosage: 5GM PACKETS-1 PACKET PER DAY
     Route: 061
     Dates: start: 1998, end: 2014
  2. ANDROGEL [Suspect]
     Active Substance: TESTOSTERONE
     Dosage: 1 PACKET EVERY DAY EXCEPT NONE EVERY 4TH DAY
     Route: 061
     Dates: start: 2014, end: 201505

REACTIONS (5)
  - Prostate cancer [Not Recovered/Not Resolved]
  - Benign neoplasm [Not Recovered/Not Resolved]
  - Heart rate irregular [Not Recovered/Not Resolved]
  - Incorrect dose administered [Unknown]
  - Benign neoplasm [Not Recovered/Not Resolved]

NARRATIVE: CASE EVENT DATE: 2013
